FAERS Safety Report 4900693-6 (Version None)
Quarter: 2006Q1

REPORT INFORMATION
  Report Type: 
  Country: None (occurrence: None)
  Receive Date: 20060201
  Receipt Date: 20060127
  Transmission Date: 20060701
  Serious: Yes (Hospitalization)
  Sender: FDA-Public Use
  Company Number: KII-2006-0020677

PATIENT
  Age: 46 Year
  Sex: Female

DRUGS (8)
  1. OXYCODONE HCL [Suspect]
     Dosage: ORAL
     Route: 048
  2. BUPROPION HCL [Suspect]
     Dosage: ORAL
     Route: 048
  3. ADVAIR DISKUS (FLUTICASONE PROPIONATE) [Suspect]
     Dosage: ORAL
     Route: 048
  4. CYCLOBENZAPRINE HCL [Suspect]
     Dosage: ORAL
     Route: 048
  5. PROMETHAZINE [Suspect]
     Dosage: ORAL
     Route: 048
  6. HYPNOTICS AND SEDATIVES ( ) [Suspect]
     Dosage: ORAL
     Route: 048
  7. PROTON PUMP INHIBITOR ( ) [Suspect]
     Dosage: ORAL
     Route: 048
  8. TRICYCLIC ANTIDEPRESSANTS ( ) [Suspect]

REACTIONS (18)
  - AMMONIA INCREASED [None]
  - BACTERIA URINE IDENTIFIED [None]
  - BACTERIAL INFECTION [None]
  - BASE EXCESS INCREASED [None]
  - BLOOD ALKALINE PHOSPHATASE INCREASED [None]
  - BLOOD BICARBONATE DECREASED [None]
  - BLOOD PH INCREASED [None]
  - BLOOD PRESSURE INCREASED [None]
  - BOWEL SOUNDS ABNORMAL [None]
  - CULTURE URINE POSITIVE [None]
  - DEPRESSED LEVEL OF CONSCIOUSNESS [None]
  - DISORIENTATION [None]
  - EYE MOVEMENT DISORDER [None]
  - MENTAL STATUS CHANGES [None]
  - PUPIL FIXED [None]
  - SEPSIS [None]
  - SINUS TACHYCARDIA [None]
  - TREMOR [None]
